FAERS Safety Report 17630040 (Version 3)
Quarter: 2020Q2

REPORT INFORMATION
  Report Type: Spontaneous
  Country: RO (occurrence: RO)
  Receive Date: 20200406
  Receipt Date: 20200427
  Transmission Date: 20200713
  Serious: Yes (Other)
  Sender: FDA-Public Use
  Company Number: RO-TERSERA THERAPEUTICS LLC-2020TRS000823

PATIENT

DRUGS (7)
  1. FULVESTRANT. [Suspect]
     Active Substance: FULVESTRANT
     Indication: PRODUCT USED FOR UNKNOWN INDICATION
     Dosage: EVERY 14 DAYS IN 1ST MONTH, SUBSEQUENTLY EVERY 28500.0MG EVERY CYCLE
     Route: 030
     Dates: start: 201912
  2. PALBOCICLIB [Suspect]
     Active Substance: PALBOCICLIB
     Indication: PRODUCT USED FOR UNKNOWN INDICATION
     Dosage: 125.0MG EVERY CYCLE
     Route: 065
     Dates: start: 201912
  3. ZOLADEX [Suspect]
     Active Substance: GOSERELIN ACETATE
     Indication: PRODUCT USED FOR UNKNOWN INDICATION
     Dosage: UNKNOWN
     Route: 058
  4. DENOSUMAB [Suspect]
     Active Substance: DENOSUMAB
     Indication: PRODUCT USED FOR UNKNOWN INDICATION
     Dosage: UNK
     Route: 065
     Dates: start: 201804
  5. TAMOXIFEN [Suspect]
     Active Substance: TAMOXIFEN
     Indication: PRODUCT USED FOR UNKNOWN INDICATION
     Dosage: UNK
     Route: 048
  6. CAPECITABINE. [Suspect]
     Active Substance: CAPECITABINE
     Indication: PRODUCT USED FOR UNKNOWN INDICATION
     Dosage: UNK
     Route: 048
     Dates: start: 201804
  7. ZOLEDRONIC ACID [Suspect]
     Active Substance: ZOLEDRONIC ACID
     Indication: PRODUCT USED FOR UNKNOWN INDICATION
     Dosage: UNK
     Route: 065

REACTIONS (12)
  - Hepatic lesion [Unknown]
  - Cholestasis [Unknown]
  - Bladder cancer [Unknown]
  - Ocular icterus [Unknown]
  - Leukopenia [Unknown]
  - Therapy non-responder [Unknown]
  - Abdominal lymphadenopathy [Unknown]
  - Jaundice [Unknown]
  - Neutropenia [Unknown]
  - Lymphadenopathy [Unknown]
  - Hepatocellular injury [Recovered/Resolved]
  - Adnexa uteri mass [Unknown]

NARRATIVE: CASE EVENT DATE: 201804
